FAERS Safety Report 24913467 (Version 3)
Quarter: 2025Q1

REPORT INFORMATION
  Report Type: Spontaneous
  Country: CA (occurrence: CA)
  Receive Date: 20250201
  Receipt Date: 20250331
  Transmission Date: 20250409
  Serious: Yes (Other)
  Sender: CELLTRION
  Company Number: CA-PFIZER INC-202500019767

PATIENT

DRUGS (20)
  1. INFLECTRA [Suspect]
     Active Substance: INFLIXIMAB-DYYB
     Indication: Crohn^s disease
     Route: 042
     Dates: start: 20211026, end: 20211206
  2. INFLECTRA [Suspect]
     Active Substance: INFLIXIMAB-DYYB
     Route: 042
     Dates: start: 20220131, end: 20230103
  3. INFLECTRA [Suspect]
     Active Substance: INFLIXIMAB-DYYB
     Route: 042
     Dates: start: 20230524, end: 20240124
  4. INFLECTRA [Suspect]
     Active Substance: INFLIXIMAB-DYYB
     Route: 042
     Dates: start: 20240920
  5. INFLECTRA [Suspect]
     Active Substance: INFLIXIMAB-DYYB
     Route: 042
     Dates: start: 20250106
  6. INFLECTRA [Suspect]
     Active Substance: INFLIXIMAB-DYYB
     Route: 042
     Dates: start: 20250123
  7. BUPRENORPHINE\NALOXONE [Concomitant]
     Active Substance: BUPRENORPHINE\NALOXONE
  8. BISOPROLOL [Concomitant]
     Active Substance: BISOPROLOL
  9. CANDESARTAN [Concomitant]
     Active Substance: CANDESARTAN
  10. CIPROFLOXACIN [Concomitant]
     Active Substance: CIPROFLOXACIN
  11. DIPHENHYDRAMINE [Concomitant]
     Active Substance: DIPHENHYDRAMINE
     Indication: Premedication
  12. DIMENHYDRINATE [Concomitant]
     Active Substance: DIMENHYDRINATE
     Indication: Premedication
  13. ESCITALOPRAM [Concomitant]
     Active Substance: ESCITALOPRAM OXALATE
  14. FLAGYL [Concomitant]
     Active Substance: METRONIDAZOLE\METRONIDAZOLE HYDROCHLORIDE
  15. FOLIC ACID [Concomitant]
     Active Substance: FOLIC ACID
  16. HYDROCORTISONE [Concomitant]
     Active Substance: HYDROCORTISONE
     Indication: Premedication
     Route: 042
  17. METHOTREXATE [Concomitant]
     Active Substance: METHOTREXATE
     Dosage: 20 MG, WEEKLY
     Route: 048
  18. PREDNISONE [Concomitant]
     Active Substance: PREDNISONE
  19. PERCOCET [Concomitant]
     Active Substance: ACETAMINOPHEN\OXYCODONE HYDROCHLORIDE
  20. SUBOXONE [Concomitant]
     Active Substance: BUPRENORPHINE HYDROCHLORIDE\NALOXONE HYDROCHLORIDE

REACTIONS (5)
  - Nausea [Recovering/Resolving]
  - Erythema [Recovering/Resolving]
  - Feeling hot [Recovering/Resolving]
  - Blood pressure systolic increased [Not Recovered/Not Resolved]
  - Off label use [Unknown]

NARRATIVE: CASE EVENT DATE: 20250123
